FAERS Safety Report 26052172 (Version 1)
Quarter: 2025Q4

REPORT INFORMATION
  Report Type: Spontaneous
  Country: EU (occurrence: EU)
  Receive Date: 20251117
  Receipt Date: 20251117
  Transmission Date: 20260118
  Serious: Yes (Other)
  Sender: SAMSUNG BIOEPIS
  Company Number: None

PATIENT
  Age: 61 Year
  Sex: Male

DRUGS (2)
  1. IMRALDI [Suspect]
     Active Substance: ADALIMUMAB
     Indication: Psoriatic arthropathy
     Dosage: IMRALDI 40 MG SOLUTION FOR INJECTION IN PRE-FILLED PEN, 2 PENS OF 0.4 ML;
     Route: 058
     Dates: start: 20250311, end: 20251007
  2. HYDROCHLOROTHIAZIDE\VALSARTAN [Concomitant]
     Active Substance: HYDROCHLOROTHIAZIDE\VALSARTAN
     Indication: Product used for unknown indication
     Dosage: CO-DIOVAN FORTE 160 MG/25 MG FILM-COATED TABLETS, 28 TABLETS (AL/PVC/PVDC);
     Route: 048
     Dates: start: 20241105

REACTIONS (2)
  - Axonal neuropathy [Recovering/Resolving]
  - Sensory loss [Recovering/Resolving]

NARRATIVE: CASE EVENT DATE: 20250804
